FAERS Safety Report 21181798 (Version 1)
Quarter: 2022Q3

REPORT INFORMATION
  Report Type: Spontaneous
  Country: FR (occurrence: FR)
  Receive Date: 20220806
  Receipt Date: 20220806
  Transmission Date: 20221026
  Serious: Yes (Hospitalization, Other)
  Sender: FDA-Public Use
  Company Number: FR-AMGEN-FRASP2022130885

PATIENT
  Age: 68 Year
  Sex: Female

DRUGS (8)
  1. BEVACIZUMAB [Suspect]
     Active Substance: BEVACIZUMAB
     Indication: Non-small cell lung cancer
     Dosage: 1000 MILLIGRAM, MOST RECENT DATE OF ADMINISTRATION IS 13/APR/2021.
     Route: 065
     Dates: start: 20210323, end: 20210323
  2. BEVACIZUMAB [Suspect]
     Active Substance: BEVACIZUMAB
     Dosage: 950 MILLIGRAM
     Route: 065
     Dates: start: 20210511, end: 20210511
  3. BEVACIZUMAB [Suspect]
     Active Substance: BEVACIZUMAB
     Dosage: 975 MILLIGRAM
     Route: 065
     Dates: start: 20210413, end: 20210413
  4. ATEZOLIZUMAB [Suspect]
     Active Substance: ATEZOLIZUMAB
     Indication: Non-small cell lung cancer
     Dosage: 1200 MILLIGRAM, 4 CYCLES - TOTAL DOSE: 4 800 MGMOST RECENT DATE OFADMINISTRATION IS 13/APR/2021.
     Route: 065
     Dates: start: 20210323, end: 20210601
  5. PEMETREXED [Concomitant]
     Active Substance: PEMETREXED
     Indication: Non-small cell lung cancer
     Dosage: 825 MILLIGRAM, DAY 1 OF CYCLE OF 21 DAYSMOST RECENT DATE OF ADMINISTRATION IS 13/APR/2021.
     Dates: start: 20210323, end: 20210601
  6. CISPLATIN [Concomitant]
     Active Substance: CISPLATIN
     Indication: Non-small cell lung cancer
     Dosage: EVERY 1 CYCLE(S) DAY 1 OF CYCLE OF 21 DAYS
     Dates: start: 20210413, end: 20210511
  7. CISPLATIN [Concomitant]
     Active Substance: CISPLATIN
     Dosage: 125 MILLIGRAM, DAY 1 OF CYCLE OF 21 DAYSMOST RECENT DATE OF
     Dates: start: 20210323, end: 20210323
  8. CISPLATIN [Concomitant]
     Active Substance: CISPLATIN
     Dosage: 122 MILLIGRAM, EVERY 1 CYCLE(S) DAY 1 OF CYCLE OF 21 DAYS
     Dates: start: 20210601, end: 20210601

REACTIONS (3)
  - Ischaemic stroke [Not Recovered/Not Resolved]
  - Infusion related reaction [Recovered/Resolved]
  - Hypertension [Recovered/Resolved]

NARRATIVE: CASE EVENT DATE: 20210511
